FAERS Safety Report 26102402 (Version 3)
Quarter: 2025Q4

REPORT INFORMATION
  Report Type: Report from Study
  Country: EU (occurrence: EU)
  Receive Date: 20251128
  Receipt Date: 20251207
  Transmission Date: 20260118
  Serious: Yes (Hospitalization, Other)
  Sender: ABBVIE
  Company Number: EU-ABBVIE-6564978

PATIENT
  Age: 84 Year

DRUGS (2)
  1. CARBIDOPA\LEVODOPA [Suspect]
     Active Substance: CARBIDOPA\LEVODOPA
     Indication: Parkinson^s disease
     Dosage: DISCONTINUED IN 2025
     Route: 050
     Dates: start: 20251006
  2. CARBIDOPA\LEVODOPA [Suspect]
     Active Substance: CARBIDOPA\LEVODOPA

REACTIONS (11)
  - Localised oedema [Unknown]
  - Device dislocation [Not Recovered/Not Resolved]
  - C-reactive protein increased [Not Recovered/Not Resolved]
  - Peritonitis [Unknown]
  - Stoma site pain [Unknown]
  - Stoma site infection [Not Recovered/Not Resolved]
  - Stoma site discomfort [Unknown]
  - Flatulence [Unknown]
  - Fatigue [Unknown]
  - Pleural effusion [Unknown]
  - Post procedural complication [Unknown]

NARRATIVE: CASE EVENT DATE: 20250101
